FAERS Safety Report 6039466-2 (Version None)
Quarter: 2009Q1

REPORT INFORMATION
  Report Type: 
  Country: None (occurrence: None)
  Receive Date: 20090114
  Receipt Date: 20090105
  Transmission Date: 20090719
  Serious: No
  Sender: FDA-Public Use
  Company Number: C-09-0001-W

PATIENT
  Age: 65 Year
  Sex: Male

DRUGS (4)
  1. ENALAPRIL MALEATE [Suspect]
     Indication: HYPERTENSION
     Dosage: 1 TABLET DAILY/ORAL
     Route: 048
     Dates: start: 20081216, end: 20081226
  2. LIPITOR [Concomitant]
  3. TRICOR [Concomitant]
  4. MULTI-VITAMIN [Concomitant]

REACTIONS (2)
  - HEADACHE [None]
  - PRODUCT QUALITY ISSUE [None]
